FAERS Safety Report 5411420-0 (Version None)
Quarter: 2007Q3

REPORT INFORMATION
  Report Type: 
  Country: None (occurrence: None)
  Receive Date: 20070810
  Receipt Date: 20070731
  Transmission Date: 20080115
  Serious: Yes (Other)
  Sender: FDA-Public Use
  Company Number: ES-GENENTECH-245476

PATIENT
  Age: 53 Year
  Sex: Male

DRUGS (3)
  1. BEVACIZUMAB [Suspect]
     Indication: COLON CANCER
     Dosage: 5 MG/KG, UNKNOWN
     Route: 065
  2. LEUCOVORIN CALCIUM [Concomitant]
     Indication: COLON CANCER
     Dosage: 200 MG/M2, UNKNOWN
     Route: 065
  3. FLUOROURACIL [Concomitant]
     Indication: COLON CANCER
     Dosage: 400 MG/M2, UNKNOWN
     Route: 040

REACTIONS (2)
  - FUNGAL INFECTION [None]
  - NASAL SEPTUM PERFORATION [None]
